FAERS Safety Report 9192109 (Version 2)
Quarter: 2013Q1

REPORT INFORMATION
  Report Type: Report from Study
  Country: CN (occurrence: CN)
  Receive Date: 20130327
  Receipt Date: 20130327
  Transmission Date: 20140127
  Serious: Yes (Hospitalization)
  Sender: FDA-Public Use
  Company Number: CN-009507513-0912CHN00003

PATIENT
  Age: 68 Year
  Sex: Female

DRUGS (7)
  1. ZOCOR [Suspect]
     Indication: HYPERCHOLESTEROLAEMIA
     Dosage: 40 MG, QD
     Route: 048
     Dates: start: 20071214, end: 20091025
  2. NIACIN (+) LAROPIPRANT [Suspect]
     Indication: HIGH DENSITY LIPOPROTEIN DECREASED
     Dosage: UNK UNK, QD
     Route: 048
     Dates: start: 20080314, end: 20091021
  3. MK-0524 [Suspect]
     Indication: HIGH DENSITY LIPOPROTEIN DECREASED
     Dosage: 20MG-1
     Route: 048
     Dates: start: 20080110
  4. MK-0524 [Suspect]
     Dosage: 40MG-2
     Route: 048
     Dates: end: 20080313
  5. TRIMETAZIDINE [Concomitant]
  6. ISOSORBIDE MONONITRATE [Concomitant]
  7. INSULIN [Concomitant]

REACTIONS (1)
  - Drug-induced liver injury [Recovered/Resolved]
